FAERS Safety Report 4282412-2 (Version None)
Quarter: 2004Q1

REPORT INFORMATION
  Report Type: 
  Country: None (occurrence: None)
  Receive Date: 20040129
  Receipt Date: 20040121
  Transmission Date: 20041129
  Serious: Yes (Hospitalization)
  Sender: FDA-Public Use
  Company Number: FRWYE530623JAN04

PATIENT
  Age: 62 Year
  Sex: Male

DRUGS (3)
  1. SIROLIMUS (SIROLIMUS, TABLET, 0) [Suspect]
     Indication: PROPHYLAXIS AGAINST TRANSPLANT REJECTION
     Dosage: ORAL
     Route: 048
     Dates: start: 20030901
  2. CELLCEPT [Suspect]
     Indication: PROPHYLAXIS AGAINST TRANSPLANT REJECTION
     Dosage: 1.5 G 1X PER 1 DAY
     Route: 048
     Dates: start: 20030901
  3. PREDNISONE [Suspect]
     Indication: PROPHYLAXIS AGAINST TRANSPLANT REJECTION
     Dosage: ORAL
     Route: 048
     Dates: start: 20030901

REACTIONS (3)
  - DOUGLAS' ABSCESS [None]
  - ENTEROCOCCAL INFECTION [None]
  - WOUND EVISCERATION [None]
